FAERS Safety Report 6031464-8 (Version None)
Quarter: 2009Q1

REPORT INFORMATION
  Report Type: 
  Country: None (occurrence: None)
  Receive Date: 20090108
  Receipt Date: 20081229
  Transmission Date: 20090719
  Serious: Yes (Death, Other)
  Sender: FDA-Public Use
  Company Number: GR-PFIZER INC-2008056754

PATIENT

DRUGS (4)
  1. GEODON [Suspect]
     Indication: PSYCHOTIC DISORDER
     Route: 048
     Dates: end: 20080101
  2. ARICEPT [Suspect]
     Indication: DEMENTIA
     Route: 048
  3. NOOTROP [Concomitant]
     Route: 048
  4. TIAPRIDAL [Concomitant]
     Route: 048
     Dates: start: 20080501, end: 20080501

REACTIONS (5)
  - BLOOD GLUCOSE INCREASED [None]
  - BLOOD PRESSURE INCREASED [None]
  - CONFUSIONAL STATE [None]
  - DEPRESSED LEVEL OF CONSCIOUSNESS [None]
  - MULTI-ORGAN FAILURE [None]
